FAERS Safety Report 7918993-4 (Version None)
Quarter: 2011Q4

REPORT INFORMATION
  Report Type: 
  Country: None (occurrence: None)
  Receive Date: 20111116
  Receipt Date: 20111110
  Transmission Date: 20120403
  Serious: Yes (Hospitalization)
  Sender: FDA-Public Use
  Company Number: DE-B.I. PHARMACEUTICALS,INC./RIDGEFIELD-2011-DE-06339DE

PATIENT
  Age: 81 Year
  Sex: Female

DRUGS (10)
  1. ALLOPURINOL [Concomitant]
  2. PRADAXA [Suspect]
     Indication: ATRIAL FIBRILLATION
  3. CANDESARTAN CILEXETIL [Concomitant]
  4. PREDNISONE [Concomitant]
  5. TORSEMIDE [Concomitant]
  6. SYMBICORT [Concomitant]
  7. INSULIN [Concomitant]
     Indication: TYPE 2 DIABETES MELLITUS
  8. NOVODIGAL [Concomitant]
  9. VERAPAMIL [Concomitant]
  10. TILIDIN COMP [Concomitant]

REACTIONS (6)
  - PNEUMONIA [None]
  - MELAENA [None]
  - DYSPNOEA [None]
  - GASTRITIS EROSIVE [None]
  - GASTRIC HAEMORRHAGE [None]
  - DUODENITIS [None]
